FAERS Safety Report 8386193-2 (Version None)
Quarter: 2012Q2

REPORT INFORMATION
  Report Type: 
  Country: None (occurrence: None)
  Receive Date: 20120523
  Receipt Date: 20120515
  Transmission Date: 20120825
  Serious: Yes (Other)
  Sender: FDA-Public Use
  Company Number: FK201201383

PATIENT
  Age: 12 Year
  Sex: Female

DRUGS (3)
  1. ADENOSINE [Suspect]
     Indication: SUPRAVENTRICULAR TACHYCARDIA
     Dosage: 150 UG/KG, FIRST DOSE, INTRA-ARTERIAL
     Route: 013
  2. ADENOSINE [Suspect]
     Indication: SUPRAVENTRICULAR TACHYCARDIA
     Dosage: 200 UG/KG, INTRAVENOUS BOLUS
     Route: 040
  3. ISOTONIC SALINE (ISOTONIC SOLUTIONS) [Suspect]
     Indication: INTRAVENOUS CATHETER MANAGEMENT
     Dosage: 20 ML, FLUSH, INTRA-ARTERIAL
     Route: 013

REACTIONS (8)
  - PAIN [None]
  - DIZZINESS [None]
  - TACHYCARDIA [None]
  - PALLOR [None]
  - NAUSEA [None]
  - INCORRECT ROUTE OF DRUG ADMINISTRATION [None]
  - VISION BLURRED [None]
  - LIVEDO RETICULARIS [None]
